FAERS Safety Report 16786985 (Version 1)
Quarter: 2019Q3

REPORT INFORMATION
  Report Type: Spontaneous
  Country: CA (occurrence: CA)
  Receive Date: 20190909
  Receipt Date: 20190909
  Transmission Date: 20191005
  Serious: Yes (Hospitalization)
  Sender: FDA-Public Use
  Company Number: CA-TEVA-2019-CA-1105262

PATIENT
  Age: 20 Month
  Sex: Female
  Weight: 2 kg

DRUGS (3)
  1. DIGOXIN. [Concomitant]
     Active Substance: DIGOXIN
  2. AMIODARONE [Concomitant]
     Active Substance: AMIODARONE
  3. PROPRANOLOL [Suspect]
     Active Substance: PROPRANOLOL HYDROCHLORIDE
     Indication: ARRHYTHMIA
     Dosage: 10 MG/KG DAILY;
     Route: 065

REACTIONS (4)
  - Drug ineffective for unapproved indication [Recovered/Resolved]
  - Hypoglycaemia [Recovered/Resolved]
  - Off label use [Recovered/Resolved]
  - Product use in unapproved indication [Recovered/Resolved]
